FAERS Safety Report 7397043-5 (Version None)
Quarter: 2011Q2

REPORT INFORMATION
  Report Type: 
  Country: None (occurrence: None)
  Receive Date: 20110406
  Receipt Date: 20110328
  Transmission Date: 20111010
  Serious: Yes (Other)
  Sender: FDA-Public Use
  Company Number: US-ASTRAZENECA-2011SE17966

PATIENT
  Age: 54 Year
  Sex: Male

DRUGS (6)
  1. SYMBICORT [Suspect]
     Route: 055
  2. LIPITOR [Concomitant]
  3. DELURA [Concomitant]
  4. CRESTOR [Suspect]
     Route: 048
  5. VENTOLIN [Concomitant]
  6. CHANTIX [Suspect]
     Route: 065

REACTIONS (6)
  - MYOCARDIAL INFARCTION [None]
  - VOMITING [None]
  - DECREASED INTEREST [None]
  - DIARRHOEA [None]
  - DIZZINESS [None]
  - EUPHORIC MOOD [None]
